FAERS Safety Report 8022038-8 (Version None)
Quarter: 2012Q1

REPORT INFORMATION
  Report Type: 
  Country: None (occurrence: None)
  Receive Date: 20120104
  Receipt Date: 20111228
  Transmission Date: 20120608
  Serious: Yes (Other)
  Sender: FDA-Public Use
  Company Number: US-BAYER-2011-116169

PATIENT
  Age: 57 Year
  Sex: Female

DRUGS (1)
  1. CLIMARA [Suspect]
     Indication: HORMONE REPLACEMENT THERAPY
     Dosage: UNK
     Dates: start: 20111101

REACTIONS (7)
  - BREAST TENDERNESS [None]
  - BREAST DISCOMFORT [None]
  - APPLICATION SITE RASH [None]
  - VAGINAL HAEMORRHAGE [None]
  - INSOMNIA [None]
  - FLUID RETENTION [None]
  - ABDOMINAL DISTENSION [None]
